FAERS Safety Report 19953088 (Version 1)
Quarter: 2021Q4

REPORT INFORMATION
  Report Type: Spontaneous
  Country: US (occurrence: US)
  Receive Date: 20211013
  Receipt Date: 20211013
  Transmission Date: 20220303
  Serious: Yes (Other)
  Sender: FDA-Public Use
  Company Number: None

PATIENT
  Age: 71 Year
  Sex: Female

DRUGS (1)
  1. AMLODIPINE BESYLATE [Suspect]
     Active Substance: AMLODIPINE BESYLATE
     Indication: Hypertension
     Route: 048
     Dates: start: 20210815

REACTIONS (5)
  - Product substitution issue [None]
  - Product physical consistency issue [None]
  - Product solubility abnormal [None]
  - Blood pressure inadequately controlled [None]
  - Therapeutic response decreased [None]

NARRATIVE: CASE EVENT DATE: 20211013
